FAERS Safety Report 8680653 (Version 3)
Quarter: 2013Q4

REPORT INFORMATION
  Report Type: Spontaneous
  Country: US (occurrence: US)
  Receive Date: 20120724
  Receipt Date: 20131115
  Transmission Date: 20140711
  Serious: Yes (Other)
  Sender: FDA-Public Use
  Company Number: US-ASTRAZENECA-2011SE64744

PATIENT
  Age: 71 Year
  Sex: Female
  Weight: 65.3 kg

DRUGS (3)
  1. NEXIUM [Suspect]
     Route: 048
  2. CRESTOR [Suspect]
     Indication: BLOOD CHOLESTEROL ABNORMAL
     Route: 048
     Dates: start: 2007
  3. Z-PACK [Concomitant]
     Dates: start: 20131105

REACTIONS (12)
  - Throat cancer [Unknown]
  - Oesophageal disorder [Unknown]
  - Gastric disorder [Unknown]
  - Pharyngeal disorder [Unknown]
  - Pain [Unknown]
  - Cough [Unknown]
  - Chills [Unknown]
  - Pyrexia [Unknown]
  - Adverse event [Unknown]
  - Feeling abnormal [Unknown]
  - Drug dose omission [Unknown]
  - Intentional drug misuse [Unknown]
